FAERS Safety Report 5601324-2 (Version None)
Quarter: 2008Q1

REPORT INFORMATION
  Report Type: 
  Country: None (occurrence: None)
  Receive Date: 20080124
  Receipt Date: 20080114
  Transmission Date: 20080703
  Serious: Yes (Hospitalization)
  Sender: FDA-Public Use
  Company Number: B0504918A

PATIENT
  Age: 50 Year
  Sex: Male

DRUGS (2)
  1. ZOPHREN [Suspect]
     Indication: PREMEDICATION
     Route: 042
     Dates: start: 20070912, end: 20070912
  2. ZOPHREN [Suspect]
     Route: 048

REACTIONS (5)
  - ANAPHYLACTIC SHOCK [None]
  - BLOOD PRESSURE DECREASED [None]
  - CHILLS [None]
  - HYPERTHERMIA [None]
  - THROMBOCYTOPENIA [None]
